FAERS Safety Report 15100401 (Version 1)
Quarter: 2018Q3

REPORT INFORMATION
  Report Type: Report from Study
  Country: IT (occurrence: IT)
  Receive Date: 20180703
  Receipt Date: 20180703
  Transmission Date: 20181010
  Serious: Yes (Other)
  Sender: FDA-Public Use
  Company Number: IT-TEVA-2018-IT-917648

PATIENT
  Age: 63 Year
  Sex: Female

DRUGS (4)
  1. LORAZEPAM. [Suspect]
     Active Substance: LORAZEPAM
     Indication: INSOMNIA
     Route: 048
     Dates: start: 20180305, end: 20180305
  2. FLUTIFORMO 50 MICROGRAMMI/5 MICROGRAMMI PER EROGAZIONE, SOSPENSIONE PR [Concomitant]
     Route: 055
  3. MODURETIC 5?50 [Concomitant]
     Active Substance: AMILORIDE HYDROCHLORIDE\HYDROCHLOROTHIAZIDE
     Route: 048
  4. TIMOPTOL 0,25% COLLIRIO, SOLUZIONE [Concomitant]
     Route: 057

REACTIONS (1)
  - Psychomotor skills impaired [Recovering/Resolving]

NARRATIVE: CASE EVENT DATE: 20180306
